FAERS Safety Report 15143849 (Version 1)
Quarter: 2018Q3

REPORT INFORMATION
  Report Type: Spontaneous
  Country: US (occurrence: US)
  Receive Date: 20180713
  Receipt Date: 20180713
  Transmission Date: 20181010
  Serious: No
  Sender: FDA-Public Use
  Company Number: US-AMGEN-USASP2010007074

PATIENT
  Age: 25 Year
  Sex: Female
  Weight: 53.97 kg

DRUGS (8)
  1. PRENATAL VITAMINS                  /01549301/ [Concomitant]
     Active Substance: VITAMINS
     Dosage: UNK
     Route: 048
     Dates: start: 20101217
  2. LABETALOL [Concomitant]
     Active Substance: LABETALOL\LABETALOL HYDROCHLORIDE
     Dosage: 400 MG, BID
     Route: 048
  3. FOLIC ACID. [Concomitant]
     Active Substance: FOLIC ACID
     Dosage: 4 MG, UNK
     Dates: start: 20101212
  4. CLONIDINE. [Concomitant]
     Active Substance: CLONIDINE
     Dosage: UNK
     Route: 048
     Dates: start: 20101217
  5. NEPHROCAPS [Concomitant]
     Active Substance: ASCORBIC ACID\BIOTIN\CYANOCOBALAMIN\FOLIC ACID\NIACIN\PANTOTHENIC ACID\PYRIDOXINE\RIBOFLAVIN\THIAMINE
     Dosage: UNK
     Route: 048
     Dates: start: 20101217
  6. FERLECIT                           /00023501/ [Concomitant]
     Dosage: UNK
     Route: 042
     Dates: start: 20110204
  7. ALDOMET [Concomitant]
     Active Substance: METHYLDOPA
     Dosage: 250 MG, BID
     Route: 048
  8. EPOGEN [Suspect]
     Active Substance: ERYTHROPOIETIN
     Indication: DIALYSIS
     Dosage: UNK UNK, 5 TIMES/WK
     Route: 042

REACTIONS (2)
  - Haematoma [Unknown]
  - Pregnancy [Unknown]

NARRATIVE: CASE EVENT DATE: 2010
